FAERS Safety Report 5314694-X (Version None)
Quarter: 2007Q2

REPORT INFORMATION
  Report Type: 
  Country: None (occurrence: None)
  Receive Date: 20070427
  Receipt Date: 20070424
  Transmission Date: 20071010
  Serious: Yes (Death)
  Sender: FDA-Public Use
  Company Number: 2007-156275-NL

PATIENT
  Age: 5 Year

DRUGS (1)
  1. PANCURONIUM BROMIDE [Suspect]

REACTIONS (1)
  - DEATH [None]
